FAERS Safety Report 12744833 (Version 2)
Quarter: 2016Q3

REPORT INFORMATION
  Report Type: Spontaneous
  Country: DE (occurrence: DE)
  Receive Date: 20160915
  Receipt Date: 20160929
  Transmission Date: 20161109
  Serious: Yes (Death)
  Sender: FDA-Public Use
  Company Number: DE-ROCHE-1829757

PATIENT
  Age: 62 Year
  Sex: Female
  Weight: 63 kg

DRUGS (9)
  1. PIRITRAMID [Concomitant]
     Route: 065
  2. URBASON [Concomitant]
     Active Substance: METHYLPREDNISOLONE
     Route: 065
  3. HEPARIN [Concomitant]
     Active Substance: HEPARIN SODIUM
     Route: 065
  4. NEBILET [Concomitant]
     Active Substance: NEBIVOLOL
     Route: 065
  5. AVASTIN [Suspect]
     Active Substance: BEVACIZUMAB
     Indication: OVARIAN CANCER METASTATIC
     Route: 065
     Dates: end: 20160727
  6. NOVALGIN [Concomitant]
     Active Substance: METAMIZOLE SODIUM
     Route: 065
  7. NEXIUM [Concomitant]
     Active Substance: ESOMEPRAZOLE MAGNESIUM
     Route: 065
  8. HYDROCORTISONE. [Concomitant]
     Active Substance: HYDROCORTISONE
     Route: 065
     Dates: end: 20160821
  9. KONAKION [Concomitant]
     Active Substance: PHYTONADIONE
     Route: 065

REACTIONS (2)
  - Impaired healing [Fatal]
  - Ileus [Fatal]

NARRATIVE: CASE EVENT DATE: 20160818
